FAERS Safety Report 12994268 (Version 1)
Quarter: 2016Q4

REPORT INFORMATION
  Report Type: Spontaneous
  Country: US (occurrence: US)
  Receive Date: 20161202
  Receipt Date: 20161202
  Transmission Date: 20170207
  Serious: No
  Sender: FDA-Public Use
  Company Number: None

PATIENT

DRUGS (1)
  1. TRIAMCINOLONE 0.147 MG/G SPRAY [Suspect]
     Active Substance: TRIAMCINOLONE ACETONIDE
     Route: 061

REACTIONS (2)
  - Drug dispensing error [None]
  - Transcription medication error [None]
